FAERS Safety Report 19774508 (Version 1)
Quarter: 2021Q3

REPORT INFORMATION
  Report Type: Spontaneous
  Country: US (occurrence: US)
  Receive Date: 20210901
  Receipt Date: 20210901
  Transmission Date: 20211014
  Serious: No
  Sender: FDA-Public Use
  Company Number: US-THERAPEUTICSMD-2021TMD01783

PATIENT
  Sex: Female

DRUGS (1)
  1. ANNOVERA [Suspect]
     Active Substance: ETHINYL ESTRADIOL\SEGESTERONE ACETATE
     Dosage: UNK

REACTIONS (7)
  - Anxiety [Unknown]
  - Mental disorder [Unknown]
  - Unevaluable event [Unknown]
  - Emotional disorder [Unknown]
  - Intermenstrual bleeding [Unknown]
  - Tachyphrenia [Unknown]
  - Depression [Unknown]
